FAERS Safety Report 9153270 (Version 1)
Quarter: 2013Q1

REPORT INFORMATION
  Report Type: Spontaneous
  Country: US (occurrence: US)
  Receive Date: 20130311
  Receipt Date: 20130311
  Transmission Date: 20140127
  Serious: No
  Sender: FDA-Public Use
  Company Number: US-BIOGENIDEC-2013BI021086

PATIENT
  Age: 26 Year
  Sex: Female

DRUGS (1)
  1. TYSABRI [Suspect]
     Indication: MULTIPLE SCLEROSIS
     Route: 042
     Dates: start: 20121114

REACTIONS (5)
  - Ear infection [Recovered/Resolved]
  - Muscle spasms [Recovered/Resolved]
  - Ligament sprain [Recovered/Resolved]
  - Vaginal infection [Recovered/Resolved]
  - Headache [Recovered/Resolved]
